FAERS Safety Report 21757193 (Version 3)
Quarter: 2023Q1

REPORT INFORMATION
  Report Type: Report from Study
  Country: US (occurrence: US)
  Receive Date: 20221220
  Receipt Date: 20230320
  Transmission Date: 20230418
  Serious: Yes (Other)
  Sender: FDA-Public Use
  Company Number: US-ABBVIE-4196756

PATIENT
  Age: 63 Year
  Sex: Female

DRUGS (5)
  1. SKYRIZI [Suspect]
     Active Substance: RISANKIZUMAB-RZAA
     Indication: Crohn^s disease
     Dosage: 360MG/2.4ML FORM STRENGTH 8 WEEKS THEREAFTER
     Route: 058
     Dates: start: 2023
  2. SKYRIZI [Suspect]
     Active Substance: RISANKIZUMAB-RZAA
     Indication: Psoriasis
     Dosage: 360MG/2.4ML FORM STRENGTH WEEK 12
     Route: 058
     Dates: start: 2023, end: 2023
  3. SKYRIZI [Suspect]
     Active Substance: RISANKIZUMAB-RZAA
     Indication: Crohn^s disease
     Dosage: WEEK 0/FORM STRENGTH: 600MG/10ML
     Route: 042
     Dates: start: 20221011, end: 20221011
  4. SKYRIZI [Suspect]
     Active Substance: RISANKIZUMAB-RZAA
     Indication: Crohn^s disease
     Dosage: WEEK 4/FORM STRENGTH:600MG/10ML
     Route: 042
     Dates: start: 202212, end: 202212
  5. SKYRIZI [Suspect]
     Active Substance: RISANKIZUMAB-RZAA
     Indication: Crohn^s disease
     Dosage: WEEK 8/FORM STRENGTH: 600MG/10ML
     Route: 058
     Dates: start: 2023, end: 2023

REACTIONS (7)
  - Back pain [Unknown]
  - Acne [Not Recovered/Not Resolved]
  - Crohn^s disease [Unknown]
  - Discomfort [Unknown]
  - Rhinorrhoea [Unknown]
  - Psoriasis [Not Recovered/Not Resolved]
  - Dyspnoea exertional [Unknown]

NARRATIVE: CASE EVENT DATE: 20230201
